FAERS Safety Report 4437093-1 (Version None)
Quarter: 2004Q3

REPORT INFORMATION
  Report Type: 
  Country: None (occurrence: None)
  Receive Date: 20040830
  Receipt Date: 20040818
  Transmission Date: 20050211
  Serious: Yes (Life-Threatening)
  Sender: FDA-Public Use
  Company Number: FR-BRISTOL-MYERS SQUIBB COMPANY-12677761

PATIENT
  Age: 39 Year
  Sex: Male

DRUGS (6)
  1. BRISTOPEN INJ 1 G [Suspect]
     Route: 042
     Dates: start: 20040311, end: 20040315
  2. VIRAMUNE [Suspect]
     Indication: HIV INFECTION
     Route: 048
     Dates: start: 20040301, end: 20040317
  3. COMBIVIR [Concomitant]
     Indication: HIV INFECTION
     Dates: end: 20040301
  4. VALPROATE SODIUM [Concomitant]
     Dates: start: 20040218, end: 20040225
  5. DEPAKOTE [Concomitant]
     Dates: start: 20040225, end: 20040321
  6. CRIXIVAN [Concomitant]
     Dates: end: 20040301

REACTIONS (2)
  - RHABDOMYOLYSIS [None]
  - TOXIC EPIDERMAL NECROLYSIS [None]
